FAERS Safety Report 11235219 (Version 1)
Quarter: 2015Q3

REPORT INFORMATION
  Report Type: Spontaneous
  Country: FR (occurrence: FR)
  Receive Date: 20150702
  Receipt Date: 20150702
  Transmission Date: 20151125
  Serious: Yes (Hospitalization)
  Sender: FDA-Public Use
  Company Number: FR-SA-2015SA089300

PATIENT
  Age: 40 Year
  Sex: Male

DRUGS (2)
  1. BUPRENORPHINE. [Suspect]
     Active Substance: BUPRENORPHINE
     Route: 065
  2. ZOLPIDEM TARTRATE. [Suspect]
     Active Substance: ZOLPIDEM TARTRATE
     Route: 065

REACTIONS (8)
  - Sensory loss [Recovering/Resolving]
  - Hemiparesis [Recovering/Resolving]
  - Aphasia [Recovering/Resolving]
  - Peripheral ischaemia [Recovering/Resolving]
  - Drug abuse [Unknown]
  - Embolic stroke [Recovering/Resolving]
  - Intentional product misuse [Unknown]
  - Loss of consciousness [Recovering/Resolving]
